FAERS Safety Report 17172586 (Version 1)
Quarter: 2019Q4

REPORT INFORMATION
  Report Type: Spontaneous
  Country: US (occurrence: US)
  Receive Date: 20191218
  Receipt Date: 20191218
  Transmission Date: 20200122
  Serious: Yes (Hospitalization)
  Sender: FDA-Public Use
  Company Number: None

PATIENT
  Age: 89 Year
  Sex: Female

DRUGS (6)
  1. HUMIRA [Suspect]
     Active Substance: ADALIMUMAB
     Indication: PRODUCT USED FOR UNKNOWN INDICATION
     Route: 058
     Dates: start: 20191127
  2. INVOKANA [Concomitant]
     Active Substance: CANAGLIFLOZIN
     Dates: start: 20191116
  3. VITAMIN D3 400 UNIT [Concomitant]
     Dates: start: 20191116
  4. ASPIRIN. [Suspect]
     Active Substance: ASPIRIN
  5. VITAMIN B12 TAB 100 MCG [Concomitant]
     Dates: start: 20191116
  6. CALCIUM 500 TAB +D [Concomitant]
     Dates: start: 20191116

REACTIONS (2)
  - Haemoglobin decreased [None]
  - Haemorrhage [None]

NARRATIVE: CASE EVENT DATE: 20191128
